FAERS Safety Report 18174392 (Version 1)
Quarter: 2020Q3

REPORT INFORMATION
  Report Type: Spontaneous
  Country: GB (occurrence: GB)
  Receive Date: 20200820
  Receipt Date: 20200820
  Transmission Date: 20201103
  Serious: Yes (Disabling)
  Sender: FDA-Public Use
  Company Number: GB-TEVA-2020-GB-1816060

PATIENT
  Age: 48 Year
  Sex: Female
  Weight: 53.97 kg

DRUGS (3)
  1. PROMETHAZINE [Suspect]
     Active Substance: PROMETHAZINE HYDROCHLORIDE
     Indication: SLEEP DISORDER
     Dosage: 25 MILLIGRAM DAILY; EVENING
     Route: 048
     Dates: start: 20200614, end: 20200615
  2. VITAMIN SUPPLEMENT [Concomitant]
     Active Substance: VITAMINS
  3. TOPIRAMATE. [Concomitant]
     Active Substance: TOPIRAMATE
     Dosage: 50 MG
     Dates: start: 20200209

REACTIONS (6)
  - Peripheral swelling [Recovered/Resolved]
  - Blood pressure increased [Unknown]
  - Pain of skin [Recovered/Resolved]
  - Eczema [Recovered/Resolved]
  - Dry skin [Recovered/Resolved]
  - Skin haemorrhage [Recovered/Resolved]

NARRATIVE: CASE EVENT DATE: 20200616
